FAERS Safety Report 17520140 (Version 1)
Quarter: 2020Q1

REPORT INFORMATION
  Report Type: Spontaneous
  Country: GB (occurrence: GB)
  Receive Date: 20200310
  Receipt Date: 20200310
  Transmission Date: 20200409
  Serious: Yes (Hospitalization, Other)
  Sender: FDA-Public Use
  Company Number: GB-AUROBINDO-AUR-APL-2020-011497

PATIENT
  Age: 43 Year
  Sex: Female
  Weight: 72 kg

DRUGS (3)
  1. OMEPRAZOLE. [Concomitant]
     Active Substance: OMEPRAZOLE
     Indication: PRODUCT USED FOR UNKNOWN INDICATION
     Dosage: 1 DOSAGE FORM, ONCE A DAY (APPROXIMATELY HALF HOUR BEFORE BREAKFAST)
     Route: 065
     Dates: start: 20200120
  2. NAPROXEN. [Concomitant]
     Active Substance: NAPROXEN
     Indication: PRODUCT USED FOR UNKNOWN INDICATION
     Dosage: 2 DOSAGE FORM, ONCE A DAY
     Route: 065
     Dates: start: 20200120
  3. SUMATRIPTAN TABLET [Suspect]
     Active Substance: SUMATRIPTAN
     Indication: HEADACHE
     Dosage: 50 MILLIGRAM, AS NECESSARY (DOSE MAY BE REPEATED)
     Route: 065
     Dates: start: 20200120

REACTIONS (3)
  - Essential tremor [Recovered/Resolved]
  - Pyrexia [Recovered/Resolved]
  - Pneumonia [Unknown]

NARRATIVE: CASE EVENT DATE: 20200120
